FAERS Safety Report 17929577 (Version 1)
Quarter: 2020Q2

REPORT INFORMATION
  Report Type: Spontaneous
  Country: IT (occurrence: IT)
  Receive Date: 20200623
  Receipt Date: 20200623
  Transmission Date: 20200714
  Serious: Yes (Other)
  Sender: FDA-Public Use
  Company Number: IT-EMD SERONO-9169716

PATIENT
  Age: 53 Year
  Sex: Female

DRUGS (3)
  1. TACHIPIRINA [Concomitant]
     Active Substance: ACETAMINOPHEN
     Indication: PREMEDICATION
     Dosage: HALF TABLET
  2. REBIF [Suspect]
     Active Substance: INTERFERON BETA-1A
     Dosage: RESTARTED ON AN UNKNOWN DATE
  3. REBIF [Suspect]
     Active Substance: INTERFERON BETA-1A
     Indication: MULTIPLE SCLEROSIS
     Dosage: SINCE 20 YEARS
     Dates: start: 2000

REACTIONS (2)
  - Facial paralysis [Recovered/Resolved]
  - Retinal vascular thrombosis [Not Recovered/Not Resolved]

NARRATIVE: CASE EVENT DATE: 20200610
